FAERS Safety Report 6492897-9 (Version None)
Quarter: 2009Q4

REPORT INFORMATION
  Report Type: 
  Country: None (occurrence: None)
  Receive Date: 20091214
  Receipt Date: 20091202
  Transmission Date: 20100525
  Serious: Yes (Other)
  Sender: FDA-Public Use
  Company Number: PHHY2009CA39738

PATIENT
  Sex: Male

DRUGS (10)
  1. SANDOSTATIN LAR [Suspect]
     Indication: HEPATIC NEOPLASM MALIGNANT
     Dosage: 20 MG, QMO
     Route: 030
     Dates: start: 20090911
  2. NICODERM [Concomitant]
     Dosage: 21 MG/ 24 HR PATCH
  3. ASAPHEN [Concomitant]
     Dosage: 80 MG DAILY
  4. LIPITOR [Concomitant]
     Dosage: 40 MG DAILY
  5. BISOPROLOL [Concomitant]
     Dosage: 0.5 DF, QD
     Route: 048
  6. NOVO-SEMIDE [Concomitant]
     Dosage: 1 DF, BID
     Route: 048
  7. PANTOPRAZOLE [Concomitant]
     Dosage: 1 DF, QD
     Route: 048
  8. SPIRONOLACTONE [Concomitant]
     Dosage: 25 MG DAILY
  9. DIOVAN [Concomitant]
     Dosage: 80 MG DAILY
  10. NICORETTE [Concomitant]
     Dosage: 4 MG GUM

REACTIONS (5)
  - ABNORMAL FAECES [None]
  - BLOOD PRESSURE DECREASED [None]
  - DIARRHOEA [None]
  - FATIGUE [None]
  - HEART RATE DECREASED [None]
